FAERS Safety Report 11279769 (Version 3)
Quarter: 2018Q3

REPORT INFORMATION
  Report Type: Spontaneous
  Country: US (occurrence: US)
  Receive Date: 20150717
  Receipt Date: 20180716
  Transmission Date: 20181010
  Serious: Yes (Other)
  Sender: FDA-Public Use
  Company Number: US-DSJP-DSU-2015-122108

PATIENT

DRUGS (4)
  1. LASIX [Concomitant]
     Active Substance: FUROSEMIDE
     Indication: PRODUCT USED FOR UNKNOWN INDICATION
     Dosage: 20 MG, QD
     Dates: start: 20031002, end: 201208
  2. LISINOPRIL. [Concomitant]
     Active Substance: LISINOPRIL
     Indication: PRODUCT USED FOR UNKNOWN INDICATION
     Dosage: 10 MG, QD
     Dates: start: 20051120
  3. CARVEDILOL. [Concomitant]
     Active Substance: CARVEDILOL
     Indication: PRODUCT USED FOR UNKNOWN INDICATION
     Dosage: 12.5 MG, BID
     Dates: start: 20080116
  4. BENICAR [Suspect]
     Active Substance: OLMESARTAN MEDOXOMIL
     Indication: HYPERTENSION
     Dosage: 40 MG, QD
     Dates: start: 20080116, end: 20130520

REACTIONS (12)
  - Acute kidney injury [Unknown]
  - Dizziness [Unknown]
  - Hiatus hernia [Unknown]
  - Crohn^s disease [Unknown]
  - Dysgeusia [Unknown]
  - Coeliac disease [Recovered/Resolved]
  - Constipation [Recovered/Resolved]
  - Haemorrhoids [Unknown]
  - Diverticulitis [Recovered/Resolved]
  - Sprue-like enteropathy [Recovered/Resolved]
  - Gastrointestinal melanosis [Unknown]
  - Diverticulum intestinal [Unknown]

NARRATIVE: CASE EVENT DATE: 200907
